FAERS Safety Report 8435383-9 (Version None)
Quarter: 2012Q2

REPORT INFORMATION
  Report Type: 
  Country: None (occurrence: None)
  Receive Date: 20120614
  Receipt Date: 20120607
  Transmission Date: 20120825
  Serious: Yes (Hospitalization, Other)
  Sender: FDA-Public Use
  Company Number: PHHY2012JP024748

PATIENT
  Sex: Male
  Weight: 60 kg

DRUGS (21)
  1. ALISKIREN [Suspect]
     Dosage: 75 MG, DAILY
     Route: 048
     Dates: start: 20100810, end: 20100916
  2. BUP-4 [Concomitant]
     Dosage: 10 MG, UNK
     Route: 048
     Dates: start: 20100725, end: 20100803
  3. CALSLOT [Suspect]
     Indication: HYPERTENSION
     Dosage: 20 MG, UNK
     Route: 048
     Dates: start: 20101118, end: 20110112
  4. CANDESARTAN CILEXETIL [Concomitant]
     Dosage: 4 MG, UNK
     Route: 048
  5. DIFLUNISAL [Concomitant]
     Indication: HYPERTENSION
     Dosage: 1 DF, UNK
     Route: 048
     Dates: start: 20101105, end: 20101117
  6. MICARDIS [Concomitant]
     Dosage: 20 MG, UNK
     Route: 048
     Dates: start: 20110721, end: 20110804
  7. CANDESARTAN CILEXETIL [Concomitant]
     Dosage: 8 MG, UNK
     Route: 048
  8. CANDESARTAN CILEXETIL [Concomitant]
     Dosage: 4 MG, UNK
     Route: 048
  9. ENALAPRIL MALEATE [Concomitant]
     Indication: HYPERTENSION
     Dosage: 5 MG, UNK
     Route: 048
     Dates: start: 20101002, end: 20101018
  10. ALLORINE [Concomitant]
     Dosage: 1 DF, UNK
     Route: 048
     Dates: start: 20100330
  11. ALISKIREN [Suspect]
     Indication: HYPERTENSION
     Dosage: 150 MG, DAILY
     Route: 048
     Dates: start: 20100330, end: 20100804
  12. SPIRONOLACTONE [Concomitant]
     Dosage: 1 DF, UNK
     Route: 048
     Dates: start: 20101216, end: 20110406
  13. ALISKIREN [Suspect]
     Dosage: 150 MG, DAILY
     Route: 048
     Dates: start: 20100917, end: 20110125
  14. DIART [Suspect]
     Dosage: 30 MG, DAILY
     Route: 048
     Dates: end: 20100709
  15. NORVASC [Concomitant]
     Indication: HYPERTENSION
     Dosage: 2.5 MG, UNK
     Route: 048
     Dates: start: 20101019, end: 20101104
  16. CORINAEL [Concomitant]
     Indication: HYPERTENSION
     Dosage: 40 MG, UNK
     Route: 048
     Dates: start: 20110113, end: 20110620
  17. DIART [Suspect]
     Dosage: 30 MG, UNK
     Route: 048
     Dates: start: 20101118
  18. DIOVAN HCT [Concomitant]
     Indication: HYPERTENSION
     Dosage: 1 DF, UNK
     Route: 048
     Dates: start: 20100213, end: 20100329
  19. CANDESARTAN CILEXETIL [Concomitant]
     Indication: HYPERTENSION
     Dosage: 4 MG, UNK
     Route: 048
     Dates: start: 20100512
  20. CANDESARTAN CILEXETIL [Concomitant]
     Dosage: 4 MG, UNK
     Route: 048
  21. URIEF [Concomitant]
     Dosage: 8 MG, UNK
     Route: 048
     Dates: start: 20100213

REACTIONS (4)
  - BLOOD PRESSURE SYSTOLIC INCREASED [None]
  - BLOOD PRESSURE DECREASED [None]
  - POLLAKIURIA [None]
  - HEAT ILLNESS [None]
